FAERS Safety Report 7961152-X (Version None)
Quarter: 2011Q4

REPORT INFORMATION
  Report Type: 
  Country: None (occurrence: None)
  Receive Date: 20111207
  Receipt Date: 20111201
  Transmission Date: 20120403
  Serious: Yes (Other)
  Sender: FDA-Public Use
  Company Number: TH-PFIZER INC-2011288998

PATIENT
  Age: 62 Year
  Sex: Female

DRUGS (7)
  1. PIOGLITAZONE [Concomitant]
     Dosage: 30 MG, UNK
     Route: 048
  2. SIMVASTATIN [Concomitant]
     Dosage: 10 MG, UNK
     Route: 048
  3. OMEPRAZOLE [Concomitant]
     Dosage: UNK
     Route: 048
  4. GLUCOPHAGE [Concomitant]
     Dosage: 500 MG, UNK
     Route: 048
  5. PLETAL [Concomitant]
     Dosage: UNK
     Route: 048
  6. SOLU-MEDROL [Suspect]
     Indication: INJURY
     Dosage: UNK MG
     Route: 040
     Dates: start: 20111123, end: 20111123
  7. RAMIPRIL [Concomitant]
     Dosage: 2.5 MG, UNK
     Route: 048

REACTIONS (1)
  - ANAPHYLACTIC SHOCK [None]
